FAERS Safety Report 18205876 (Version 1)
Quarter: 2020Q3

REPORT INFORMATION
  Report Type: Spontaneous
  Country: US (occurrence: US)
  Receive Date: 20200828
  Receipt Date: 20200828
  Transmission Date: 20201103
  Serious: No
  Sender: FDA-Public Use
  Company Number: US-NOVITIUMPHARMA-2020USNVP00016

PATIENT
  Age: 69 Year
  Sex: Female

DRUGS (7)
  1. TRIAMCINOLONE ACETONIDE. [Concomitant]
     Active Substance: TRIAMCINOLONE ACETONIDE
     Indication: EOSINOPHILIC GASTRITIS
     Route: 030
  2. VITAMIN D [Concomitant]
     Active Substance: VITAMIN D NOS
     Indication: EOSINOPHILIC GASTRITIS
  3. MAGNESIUM [Concomitant]
     Active Substance: MAGNESIUM
     Indication: EOSINOPHILIC GASTRITIS
  4. DEXLANSOPRAZOLE [Concomitant]
     Active Substance: DEXLANSOPRAZOLE
     Indication: EOSINOPHILIC GASTRITIS
  5. PREDNISONE. [Suspect]
     Active Substance: PREDNISONE
     Indication: EOSINOPHILIC GASTRITIS
     Route: 048
  6. BENAZEPRIL [Concomitant]
     Active Substance: BENAZEPRIL HYDROCHLORIDE
     Indication: EOSINOPHILIC GASTRITIS
  7. ALPRAZOLAM. [Concomitant]
     Active Substance: ALPRAZOLAM
     Indication: EOSINOPHILIC GASTRITIS

REACTIONS (2)
  - Rash macular [Recovering/Resolving]
  - Recall phenomenon [Recovering/Resolving]
